FAERS Safety Report 10278545 (Version 2)
Quarter: 2014Q3

REPORT INFORMATION
  Report Type: Report from Study
  Country: CA (occurrence: CA)
  Receive Date: 20140704
  Receipt Date: 20140709
  Transmission Date: 20150326
  Serious: Yes (Other)
  Sender: FDA-Public Use
  Company Number: CA-JNJFOC-20140618142

PATIENT
  Sex: Male
  Weight: 99.79 kg

DRUGS (5)
  1. LISINOPRIL. [Concomitant]
     Active Substance: LISINOPRIL
     Route: 065
  2. REMICADE [Suspect]
     Active Substance: INFLIXIMAB
     Indication: ANKYLOSING SPONDYLITIS
     Route: 042
     Dates: start: 2006, end: 201403
  3. COLCHICINE. [Concomitant]
     Active Substance: COLCHICINE
     Route: 065
  4. FEBUXOSTAT. [Concomitant]
     Active Substance: FEBUXOSTAT
     Dosage: STARTED THIS APPROX 1 YEAR AGO, BUT WAS ON A MEDICATION SIMILAR TO THIS BEFORE
     Route: 065
  5. FELODIPINE. [Concomitant]
     Active Substance: FELODIPINE
     Route: 065

REACTIONS (4)
  - Abdominal hernia [Recovering/Resolving]
  - Dry skin [Unknown]
  - Pruritus [Unknown]
  - Appendicitis [Recovered/Resolved]

NARRATIVE: CASE EVENT DATE: 2013
